FAERS Safety Report 19139574 (Version 1)
Quarter: 2021Q2

REPORT INFORMATION
  Report Type: Spontaneous
  Country: US (occurrence: US)
  Receive Date: 20210415
  Receipt Date: 20210415
  Transmission Date: 20210717
  Serious: Yes (Life-Threatening)
  Sender: FDA-Public Use
  Company Number: US-PFIZER INC-2021213497

PATIENT
  Age: 55 Year
  Sex: Female

DRUGS (9)
  1. POTASSIUM PHOSPHATE/SODIUM PHOSPHATE [Suspect]
     Active Substance: POTASSIUM PHOSPHATE\SODIUM PHOSPHATE
     Indication: SUPPLEMENTATION THERAPY
     Dosage: (250?45?298 MG ONCE) DAY 0
  2. CALCIUM CITRATE [Suspect]
     Active Substance: CALCIUM CITRATE
     Indication: SUPPLEMENTATION THERAPY
     Dosage: 3.8 G (+4 DAYS)
     Route: 048
  3. SODIUM PHOSPHATE [Suspect]
     Active Substance: SODIUM PHOSPHATE
     Indication: SUPPLEMENTATION THERAPY
     Dosage: 30 MMOL; ?10DAYS
     Route: 042
  4. POTASSIUM PHOSPHATE/SODIUM PHOSPHATE [Suspect]
     Active Substance: POTASSIUM PHOSPHATE\SODIUM PHOSPHATE
     Dosage: 3X/DAY (250?45?298 MG) +3 DAYS
  5. SODIUM PHOSPHATE [Suspect]
     Active Substance: SODIUM PHOSPHATE
     Dosage: 30 MMOL; ?4DAYS
     Route: 042
  6. SODIUM PHOSPHATE [Suspect]
     Active Substance: SODIUM PHOSPHATE
     Dosage: 15 MMOL; +4DAYS
     Route: 042
  7. POTASSIUM PHOSPHATE/SODIUM PHOSPHATE [Suspect]
     Active Substance: POTASSIUM PHOSPHATE\SODIUM PHOSPHATE
     Dosage: 4X/DAY (250?45?298 MG) +4 DAYS
  8. CALCIUM GLUCONATE. [Suspect]
     Active Substance: CALCIUM GLUCONATE
     Dosage: 2 G; +4DAYS
     Route: 042
  9. CALCIUM GLUCONATE. [Suspect]
     Active Substance: CALCIUM GLUCONATE
     Indication: SUPPLEMENTATION THERAPY
     Dosage: 4 G; DAY 0
     Route: 042

REACTIONS (2)
  - Blood phosphorus increased [Recovering/Resolving]
  - Blood parathyroid hormone decreased [Recovering/Resolving]
